FAERS Safety Report 5234510-4 (Version None)
Quarter: 2007Q1

REPORT INFORMATION
  Report Type: 
  Country: None (occurrence: None)
  Receive Date: 20070208
  Receipt Date: 20070208
  Transmission Date: 20070707
  Serious: Yes (Hospitalization)
  Sender: FDA-Public Use
  Company Number: None

PATIENT
  Age: 25 Year
  Sex: Male

DRUGS (4)
  1. IBUPROFEN [Suspect]
     Indication: MYALGIA
     Dosage: 800 MG PO Q 4HRS
     Route: 048
     Dates: start: 20061217, end: 20061218
  2. PREDNISONE [Suspect]
     Indication: HENOCH-SCHONLEIN PURPURA
     Dosage: 90MG ORAL WITH TAPER
     Route: 048
     Dates: start: 20061217, end: 20070207
  3. PREDNISONE [Concomitant]
  4. PERCOCET [Concomitant]

REACTIONS (5)
  - ABDOMINAL PAIN [None]
  - BLOOD UREA INCREASED [None]
  - HAEMATEMESIS [None]
  - NAUSEA [None]
  - OESOPHAGITIS [None]
